FAERS Safety Report 17369602 (Version 3)
Quarter: 2020Q1

REPORT INFORMATION
  Report Type: Spontaneous
  Country: US (occurrence: US)
  Receive Date: 20200204
  Receipt Date: 20200213
  Transmission Date: 20200409
  Serious: No
  Sender: FDA-Public Use
  Company Number: US-MTPC-MTDA2020-0041631

PATIENT

DRUGS (2)
  1. RILUZOLE. [Concomitant]
     Active Substance: RILUZOLE
     Indication: PRODUCT USED FOR UNKNOWN INDICATION
     Dosage: 1 DOSAGE TABLET, 8/12 HOURS
     Route: 065
     Dates: start: 20191014
  2. RADICAVA [Suspect]
     Active Substance: EDARAVONE
     Indication: AMYOTROPHIC LATERAL SCLEROSIS
     Dosage: 30 MG/100 ML
     Route: 042
     Dates: start: 20191114

REACTIONS (2)
  - Drug ineffective [Unknown]
  - Underdose [Unknown]
